FAERS Safety Report 4286316-0 (Version None)
Quarter: 2004Q1

REPORT INFORMATION
  Report Type: 
  Country: None (occurrence: None)
  Receive Date: 20040121
  Receipt Date: 20030226
  Transmission Date: 20041129
  Serious: Yes (Life-Threatening, Hospitalization, Disabling)
  Sender: FDA-Public Use
  Company Number: A03200300413

PATIENT
  Age: 64 Year
  Sex: Male

DRUGS (4)
  1. PLAVIX [Suspect]
     Indication: CAROTID ENDARTERECTOMY
     Dosage: NI UNK - ORAL
     Route: 048
  2. LISINOPRIL [Concomitant]
  3. LEVOTHYROXINE SODIUM [Concomitant]
  4. ATORVASTATIN [Concomitant]

REACTIONS (1)
  - CEREBRAL HAEMORRHAGE [None]
